FAERS Safety Report 24240232 (Version 2)
Quarter: 2024Q3

REPORT INFORMATION
  Report Type: Spontaneous
  Country: CA (occurrence: CA)
  Receive Date: 20240822
  Receipt Date: 20240920
  Transmission Date: 20241017
  Serious: Yes (Other)
  Sender: TEVA
  Company Number: CA-TEVA-VS-3234981

PATIENT
  Sex: Female

DRUGS (15)
  1. CEFADROXIL [Suspect]
     Active Substance: CEFADROXIL
     Indication: Cellulitis
     Route: 065
     Dates: start: 2015
  2. DURVALUMAB [Suspect]
     Active Substance: DURVALUMAB
     Indication: Metastatic malignant melanoma
     Dosage: FIRST LINE TREATMENT
     Route: 065
     Dates: start: 2015, end: 2016
  3. DURVALUMAB [Suspect]
     Active Substance: DURVALUMAB
     Indication: Metastatic malignant melanoma
     Dosage: RETREATED AFTER SEVERAL MONTHS
     Route: 065
  4. LEVOFLOXACIN [Suspect]
     Active Substance: LEVOFLOXACIN
     Indication: Pneumonia
     Route: 065
     Dates: start: 2019
  5. LEVOFLOXACIN [Suspect]
     Active Substance: LEVOFLOXACIN
     Indication: Pneumonia
     Route: 065
     Dates: start: 2016
  6. AMOXICILLIN\CLAVULANIC ACID [Suspect]
     Active Substance: AMOXICILLIN\CLAVULANIC ACID
     Indication: Pneumonia
     Route: 065
     Dates: start: 2018
  7. IPILIMUMAB [Suspect]
     Active Substance: IPILIMUMAB
     Indication: Metastatic malignant melanoma
     Dosage: FOURTH LINE TREATMENT
     Route: 065
     Dates: start: 2020
  8. IPILIMUMAB [Suspect]
     Active Substance: IPILIMUMAB
     Indication: Metastatic malignant melanoma
     Dosage: THIRD LINE IPILIMUMAB MONOTHERAPY FOR FOUR CYCLES
     Route: 065
     Dates: start: 201812
  9. NIVOLUMAB [Suspect]
     Active Substance: NIVOLUMAB
     Indication: Metastatic malignant melanoma
     Dosage: MAINTENANCE THERAPY
     Route: 065
  10. NIVOLUMAB [Suspect]
     Active Substance: NIVOLUMAB
     Indication: Metastatic malignant melanoma
     Dosage: SECOND LINE TREATMENT
     Route: 065
  11. NIVOLUMAB [Suspect]
     Active Substance: NIVOLUMAB
     Indication: Metastatic malignant melanoma
     Dosage: FOURTH LINE TREATMENT
     Route: 065
     Dates: start: 2020
  12. MOXIFLOXACIN [Suspect]
     Active Substance: MOXIFLOXACIN
     Indication: Pneumonia
     Route: 065
     Dates: start: 2017
  13. ALDESLEUKIN [Concomitant]
     Active Substance: ALDESLEUKIN
     Indication: Metastatic malignant melanoma
     Dosage: SECOND LINE TREATMENT
     Route: 065
  14. TRAMETINIB [Suspect]
     Active Substance: TRAMETINIB
     Indication: Metastatic malignant melanoma
     Dosage: FIRST LINE TREATMENT
     Route: 065
     Dates: start: 2015, end: 2016
  15. TRAMETINIB [Suspect]
     Active Substance: TRAMETINIB
     Indication: Metastatic malignant melanoma
     Dosage: RETREATED AFTER SEVERAL MONTHS
     Route: 065

REACTIONS (5)
  - Gastrointestinal disorder [Recovered/Resolved]
  - Immune-mediated enterocolitis [Recovered/Resolved]
  - Diarrhoea [Recovered/Resolved]
  - Immune-mediated lung disease [Recovered/Resolved]
  - Hypomagnesaemia [Unknown]
